FAERS Safety Report 9498532 (Version 2)
Quarter: 2013Q3

REPORT INFORMATION
  Report Type: Spontaneous
  Country: JP (occurrence: JP)
  Receive Date: 20130904
  Receipt Date: 20130925
  Transmission Date: 20140515
  Serious: Yes (Other)
  Sender: FDA-Public Use
  Company Number: JP-GLAXOSMITHKLINE-B0919997A

PATIENT
  Age: 33 Year
  Sex: Female

DRUGS (4)
  1. VOTRIENT 200MG [Suspect]
     Indication: SYNOVIAL SARCOMA
     Dosage: 800MG PER DAY
     Route: 048
     Dates: start: 20130805, end: 20130822
  2. VOTRIENT 200MG [Suspect]
     Indication: SYNOVIAL SARCOMA
     Dosage: 600MG PER DAY
     Route: 048
     Dates: start: 20130823
  3. MIYA BM [Concomitant]
     Dosage: 1G THREE TIMES PER DAY
     Route: 048
     Dates: start: 20130807
  4. AMLODIPINE [Concomitant]
     Dosage: 5MG PER DAY
     Route: 048
     Dates: start: 20130809

REACTIONS (2)
  - Skin disorder [Not Recovered/Not Resolved]
  - Blood bilirubin increased [Recovering/Resolving]
